FAERS Safety Report 24969232 (Version 2)
Quarter: 2025Q1

REPORT INFORMATION
  Report Type: Report from Study
  Country: CA (occurrence: CA)
  Receive Date: 20250214
  Receipt Date: 20250220
  Transmission Date: 20250409
  Serious: Yes (Hospitalization, Other)
  Sender: TAKEDA
  Company Number: CA-TAKEDA-2020TUS014453

PATIENT
  Sex: Female

DRUGS (5)
  1. VEDOLIZUMAB [Suspect]
     Active Substance: VEDOLIZUMAB
     Indication: Colitis ulcerative
  2. VEDOLIZUMAB [Suspect]
     Active Substance: VEDOLIZUMAB
  3. VEDOLIZUMAB [Suspect]
     Active Substance: VEDOLIZUMAB
  4. VEDOLIZUMAB [Suspect]
     Active Substance: VEDOLIZUMAB
  5. PREDNISONE [Concomitant]
     Active Substance: PREDNISONE
     Dosage: UNK, QD

REACTIONS (4)
  - Pneumonia [Unknown]
  - Influenza like illness [Unknown]
  - Product dose omission issue [Unknown]
  - COVID-19 [Unknown]
